FAERS Safety Report 7785822-1 (Version None)
Quarter: 2011Q3

REPORT INFORMATION
  Report Type: 
  Country: None (occurrence: None)
  Receive Date: 20110929
  Receipt Date: 20110918
  Transmission Date: 20111222
  Serious: Yes (Other)
  Sender: FDA-Public Use
  Company Number: CA-CELGENEUS-028-C5013-11020845

PATIENT
  Sex: Female
  Weight: 48 kg

DRUGS (36)
  1. LENALIDOMIDE [Suspect]
     Dosage: 25 MILLIGRAM
     Route: 048
     Dates: start: 20110526
  2. DEXAMETHASONE [Suspect]
     Dosage: 20 MILLIGRAM
     Route: 065
     Dates: start: 20110120
  3. SENOKOT [Concomitant]
     Indication: CONSTIPATION
     Route: 065
     Dates: start: 20100521, end: 20100609
  4. SOFLAX [Concomitant]
     Indication: CONSTIPATION
     Route: 065
     Dates: start: 20100601
  5. DEXAMETHASONE [Suspect]
     Indication: MULTIPLE MYELOMA
     Dosage: 20 MILLIGRAM
     Route: 065
     Dates: start: 20100610
  6. LOVAZA [Concomitant]
     Indication: VITAMIN SUPPLEMENTATION
     Route: 065
     Dates: start: 20090101
  7. MILK OF MAGNESIA TAB [Concomitant]
     Dosage: 15 MILLIGRAM
     Route: 065
     Dates: start: 20100521
  8. AMITRIPTYLINE HCL [Concomitant]
     Dosage: 50 MILLIGRAM
     Route: 065
     Dates: start: 20100629
  9. CALCIUM CARBONATE [Concomitant]
     Indication: OSTEOPENIA
     Dosage: 500 MILLIGRAM
     Route: 065
     Dates: start: 20000101
  10. MS CONTIN [Concomitant]
     Dosage: 30 MILLIGRAM
     Route: 065
     Dates: start: 20101201
  11. ASPIRIN [Concomitant]
     Dosage: 81 MILLIGRAM
     Route: 065
     Dates: start: 20100610, end: 20100625
  12. MORPHINE [Concomitant]
     Indication: BONE PAIN
     Dosage: 5 MILLIGRAM
     Route: 065
     Dates: start: 20100430, end: 20100525
  13. MS CONTIN [Concomitant]
     Dosage: 40 MILLIGRAM
     Route: 065
     Dates: start: 20101101, end: 20101201
  14. ACETAMINOPHEN [Concomitant]
     Indication: BONE PAIN
     Dosage: 2 TABLET
     Route: 048
     Dates: start: 20091109, end: 20101101
  15. DEXAMETHASONE [Suspect]
     Dosage: 20 MILLIGRAM
     Route: 065
     Dates: start: 20110317, end: 20110413
  16. DALTEPARIN SODIUM [Concomitant]
     Dosage: 10000 IU (INTERNATIONAL UNIT)
     Route: 065
     Dates: start: 20100626, end: 20100709
  17. PAMIDRONATE DISODIUM [Concomitant]
     Indication: BONE DISORDER
     Dosage: 90 MILLIGRAM
     Route: 065
     Dates: start: 20100617
  18. MAGIC MOUTHWASH [Concomitant]
     Dosage: 2.5 MILLILITER
     Route: 065
     Dates: start: 20100913, end: 20100929
  19. ACETAMINOPHEN [Concomitant]
     Indication: BACK PAIN
  20. LENALIDOMIDE [Suspect]
     Indication: MULTIPLE MYELOMA
     Dosage: 25 MILLIGRAM
     Route: 048
     Dates: start: 20100610
  21. LOVENOX [Concomitant]
     Dosage: 80 MILLIGRAM
     Route: 058
     Dates: start: 20110415
  22. AMITRIPTYLINE HCL [Concomitant]
     Indication: BONE PAIN
     Dosage: 25 MILLIGRAM
     Route: 065
     Dates: start: 20100623, end: 20100628
  23. MS CONTIN [Concomitant]
     Dosage: 45 MILLIGRAM
     Route: 065
     Dates: start: 20100929, end: 20101101
  24. FERROUS SULFATE TAB [Concomitant]
     Dosage: 300 MILLIGRAM
     Route: 065
     Dates: start: 20110504, end: 20110518
  25. LENALIDOMIDE [Suspect]
     Dosage: 25 MILLIGRAM
     Route: 048
     Dates: start: 20110317, end: 20110413
  26. DEXAMETHASONE [Suspect]
     Dosage: 20 MILLIGRAM
     Route: 065
     Dates: start: 20110526
  27. LOVENOX [Concomitant]
     Indication: PULMONARY EMBOLISM
     Dosage: 80 MILLIGRAM
     Route: 058
     Dates: start: 20100710, end: 20110414
  28. MORPHINE [Concomitant]
     Dosage: 15 MILLIGRAM
     Route: 065
     Dates: start: 20100626, end: 20100706
  29. COLACE [Concomitant]
     Indication: CONSTIPATION
     Route: 065
     Dates: start: 20100521, end: 20100601
  30. LENALIDOMIDE [Suspect]
     Dosage: 25 MILLIGRAM
     Route: 048
     Dates: start: 20110120
  31. MORPHINE [Concomitant]
     Dosage: 15 MILLIGRAM
     Route: 065
     Dates: start: 20100430, end: 20100625
  32. MORPHINE [Concomitant]
     Dosage: 30 MILLIGRAM
     Route: 065
     Dates: start: 20100626, end: 20100706
  33. MORPHINE [Concomitant]
     Dosage: 60 MILLIGRAM
     Route: 065
     Dates: start: 20100707
  34. VITAMIN D [Concomitant]
     Indication: VITAMIN SUPPLEMENTATION
     Dosage: 2000 MILLIGRAM
     Route: 065
     Dates: start: 20080101
  35. PAMIDRONATE DISODIUM [Concomitant]
     Indication: SUPPORTIVE CARE
  36. MS CONTIN [Concomitant]
     Indication: BONE PAIN
     Dosage: 60 MILLIGRAM
     Route: 065
     Dates: start: 20100707, end: 20100929

REACTIONS (1)
  - LUNG SQUAMOUS CELL CARCINOMA STAGE UNSPECIFIED [None]
